FAERS Safety Report 7350046-9 (Version None)
Quarter: 2011Q1

REPORT INFORMATION
  Report Type: 
  Country: None (occurrence: None)
  Receive Date: 20110314
  Receipt Date: 20110307
  Transmission Date: 20110831
  Serious: Yes (Death)
  Sender: FDA-Public Use
  Company Number: FR-ROCHE-764467

PATIENT
  Sex: Male

DRUGS (4)
  1. PEGASYS [Suspect]
     Route: 058
     Dates: start: 20100303, end: 20101229
  2. COPEGUS [Suspect]
     Route: 048
     Dates: start: 20060101
  3. PEGASYS [Suspect]
     Route: 058
     Dates: start: 20060101
  4. COPEGUS [Suspect]
     Route: 048
     Dates: start: 20100303, end: 20101229

REACTIONS (2)
  - RESPIRATORY DISTRESS [None]
  - INTERSTITIAL LUNG DISEASE [None]
